FAERS Safety Report 5290322-7 (Version None)
Quarter: 2007Q2

REPORT INFORMATION
  Report Type: 
  Country: None (occurrence: None)
  Receive Date: 20070409
  Receipt Date: 20070330
  Transmission Date: 20071010
  Serious: Yes (Other)
  Sender: FDA-Public Use
  Company Number: US-JNJFOC-20070400533

PATIENT
  Sex: Male

DRUGS (7)
  1. FENTANYL TRANSDERMAL SYSTEM [Suspect]
     Route: 062
  2. FENTANYL TRANSDERMAL SYSTEM [Suspect]
     Indication: PAIN
     Route: 062
  3. XANAX [Concomitant]
     Indication: NERVOUSNESS
     Route: 048
  4. HYDROCODONE [Concomitant]
     Indication: PAIN
     Route: 048
  5. FLOMAX [Concomitant]
     Indication: PROSTATE CANCER
     Route: 048
  6. MEGESTROL ACETATE [Concomitant]
     Indication: HYPERHIDROSIS
     Route: 048
  7. ECOTRIN [Concomitant]
     Indication: ANTICOAGULANT THERAPY
     Route: 048

REACTIONS (8)
  - ABDOMINAL DISCOMFORT [None]
  - APPLICATION SITE URTICARIA [None]
  - CONSTIPATION [None]
  - DRUG WITHDRAWAL SYNDROME [None]
  - HYPERHIDROSIS [None]
  - NAUSEA [None]
  - PROSTATE CANCER [None]
  - WRONG TECHNIQUE IN DRUG USAGE PROCESS [None]
